FAERS Safety Report 6082550-8 (Version None)
Quarter: 2009Q1

REPORT INFORMATION
  Report Type: 
  Country: None (occurrence: None)
  Receive Date: 20090218
  Receipt Date: 20090217
  Transmission Date: 20090719
  Serious: Yes (Hospitalization, Disabling)
  Sender: FDA-Public Use
  Company Number: FR-WYE-G03105309

PATIENT
  Sex: Female

DRUGS (6)
  1. ENBREL [Suspect]
     Indication: RHEUMATOID ARTHRITIS
     Route: 058
     Dates: start: 20070601, end: 20090101
  2. DOLIPRANE [Concomitant]
     Dosage: 4 G TOTAL DAILY
     Route: 048
     Dates: start: 19980101
  3. SPECIAFOLDINE [Suspect]
     Route: 048
     Dates: start: 19980101
  4. EUPANTOL [Suspect]
     Route: 048
     Dates: start: 19980101, end: 20090101
  5. BI-PROFENID [Suspect]
     Route: 048
     Dates: start: 19980101
  6. METHOTREXATE [Suspect]
     Route: 048
     Dates: start: 19980101

REACTIONS (4)
  - AORTIC VALVE INCOMPETENCE [None]
  - CARDIAC FAILURE [None]
  - CONGESTIVE CARDIOMYOPATHY [None]
  - MITRAL VALVE INCOMPETENCE [None]
